FAERS Safety Report 5338213-7 (Version None)
Quarter: 2007Q2

REPORT INFORMATION
  Report Type: 
  Country: None (occurrence: None)
  Receive Date: 20070530
  Receipt Date: 20070509
  Transmission Date: 20071010
  Serious: Yes (Hospitalization)
  Sender: FDA-Public Use
  Company Number: AU-JNJFOC-20070503049

PATIENT
  Age: 53 Year
  Sex: Female

DRUGS (5)
  1. TRAMADOL HCL [Suspect]
     Route: 048
  2. TRAMADOL HCL [Suspect]
     Indication: PAIN
     Dosage: 4 DF
     Route: 048
  3. PAROXETINE [Interacting]
     Route: 048
  4. PAROXETINE [Interacting]
     Indication: DEPRESSION
     Dosage: 4DF
     Route: 048
  5. ALPRAZOLAM [Concomitant]
     Route: 065

REACTIONS (3)
  - DRUG INTERACTION [None]
  - MANIA [None]
  - SEROTONIN SYNDROME [None]
